FAERS Safety Report 22357430 (Version 3)
Quarter: 2024Q2

REPORT INFORMATION
  Report Type: Spontaneous
  Country: JP (occurrence: JP)
  Receive Date: 20230524
  Receipt Date: 20240611
  Transmission Date: 20240716
  Serious: Yes (Death, Hospitalization, Other)
  Sender: FDA-Public Use
  Company Number: JP-CHUGAI-2023017818

PATIENT
  Age: 77 Year
  Sex: Male
  Weight: 65 kg

DRUGS (5)
  1. TECENTRIQ [Suspect]
     Active Substance: ATEZOLIZUMAB
     Indication: Hepatocellular carcinoma
     Dosage: UNK
     Route: 041
     Dates: start: 20221108, end: 20230413
  2. AVASTIN [Suspect]
     Active Substance: BEVACIZUMAB
     Indication: Hepatocellular carcinoma
     Route: 041
     Dates: start: 20221108, end: 20240413
  3. ADALAT [Concomitant]
     Active Substance: NIFEDIPINE
     Dosage: UNK
  4. OLMESARTAN MEDOXOMIL [Concomitant]
     Active Substance: OLMESARTAN MEDOXOMIL
     Dosage: UNK
  5. URSODIOL [Concomitant]
     Active Substance: URSODIOL
     Dosage: UNK

REACTIONS (8)
  - Hepatic cirrhosis [Fatal]
  - Necrotising colitis [Fatal]
  - Cardio-respiratory arrest [Unknown]
  - Oxygen saturation decreased [Unknown]
  - Tachypnoea [Unknown]
  - Aspiration [Unknown]
  - Portal vein thrombosis [Fatal]
  - Disease progression [Fatal]

NARRATIVE: CASE EVENT DATE: 20230209
